FAERS Safety Report 6828057-9 (Version None)
Quarter: 2010Q3

REPORT INFORMATION
  Report Type: 
  Country: None (occurrence: None)
  Receive Date: 20100709
  Receipt Date: 20100705
  Transmission Date: 20110219
  Serious: Yes (Other)
  Sender: FDA-Public Use
  Company Number: B0663815A

PATIENT
  Age: 86 Year
  Sex: Female

DRUGS (11)
  1. ARIXTRA [Suspect]
     Indication: PULMONARY EMBOLISM
     Dosage: 7.5MG PER DAY
     Route: 058
     Dates: start: 20100215, end: 20100218
  2. COUMADIN [Concomitant]
     Dosage: 2MG UNKNOWN
     Route: 048
     Dates: start: 20100216
  3. NEXIUM [Concomitant]
     Dosage: 20MG UNKNOWN
     Route: 048
     Dates: start: 20100215, end: 20100218
  4. PLAVIX [Concomitant]
     Route: 065
  5. KARDEGIC [Concomitant]
     Route: 065
  6. TRINITRINE [Concomitant]
     Dosage: 5MG PER DAY
     Route: 065
  7. NEBILOX [Concomitant]
     Route: 065
  8. CORVASAL [Concomitant]
     Route: 065
  9. ZOCOR [Concomitant]
     Route: 065
  10. DIANTALVIC [Concomitant]
     Route: 065
  11. COLPOTROPHINE [Concomitant]
     Route: 065

REACTIONS (5)
  - PRURIGO [None]
  - PRURITUS [None]
  - PURPURA [None]
  - RASH MACULO-PAPULAR [None]
  - VASCULITIS [None]
